FAERS Safety Report 4667738-2 (Version None)
Quarter: 2005Q2

REPORT INFORMATION
  Report Type: 
  Country: None (occurrence: None)
  Receive Date: 20050520
  Receipt Date: 20031223
  Transmission Date: 20051028
  Serious: Yes (Death, Other)
  Sender: FDA-Public Use
  Company Number: US-GLAXOSMITHKLINE-A0491951A

PATIENT
  Age: 21 Year
  Sex: Male

DRUGS (1)
  1. PAXIL [Suspect]
     Indication: ILL-DEFINED DISORDER
     Dosage: 40MG PER DAY
     Route: 048

REACTIONS (2)
  - AGGRESSION [None]
  - DEATH [None]
